FAERS Safety Report 4594594-3 (Version None)
Quarter: 2005Q1

REPORT INFORMATION
  Report Type: 
  Country: None (occurrence: None)
  Receive Date: 20050301
  Receipt Date: 20040818
  Transmission Date: 20050727
  Serious: No
  Sender: FDA-Public Use
  Company Number: US-BRISTOL-MYERS SQUIBB COMPANY-12675351

PATIENT
  Age: 53 Year
  Sex: Male
  Weight: 104 kg

DRUGS (8)
  1. ERBITUX [Suspect]
     Indication: COLORECTAL CANCER
     Dosage: TOTAL DOSE FIRST INFUSION = 924MG.
     Route: 042
     Dates: start: 20040723, end: 20040723
  2. CAMPTOSAR [Concomitant]
  3. DECADRON [Concomitant]
     Indication: PREMEDICATION
     Route: 042
     Dates: start: 20040723, end: 20040723
  4. TYLENOL (CAPLET) [Concomitant]
     Indication: PREMEDICATION
     Route: 048
     Dates: start: 20040723, end: 20040723
  5. ZOFRAN [Concomitant]
     Indication: PREMEDICATION
     Route: 042
     Dates: start: 20040723, end: 20040723
  6. LOMOTIL [Concomitant]
  7. BACTRIM [Concomitant]
  8. COMPAZINE [Concomitant]

REACTIONS (5)
  - CHEST DISCOMFORT [None]
  - CHILLS [None]
  - DYSPNOEA [None]
  - FEELING COLD [None]
  - FLUSHING [None]
